FAERS Safety Report 14860816 (Version 1)
Quarter: 2018Q2

REPORT INFORMATION
  Report Type: Spontaneous
  Country: ZA (occurrence: ZA)
  Receive Date: 20180508
  Receipt Date: 20180508
  Transmission Date: 20180711
  Serious: Yes (Death)
  Sender: FDA-Public Use
  Company Number: ZA-PFIZER INC-2018186437

PATIENT
  Age: 89 Year
  Sex: Female

DRUGS (5)
  1. SANDOZ CINNARIZINE [Suspect]
     Active Substance: CINNARIZINE
     Dosage: 25 MG, UNK
  2. TRAMAZAC CO [Suspect]
     Active Substance: ACETAMINOPHEN\TRAMADOL
     Dosage: 37.5/325 MG
  3. PEARINDA PLUS [Suspect]
     Active Substance: INDAPAMIDE\PERINDOPRIL
     Dosage: 4/1.25MG
  4. PURATA [Suspect]
     Active Substance: OXAZEPAM
     Dosage: 30 MG, UNK
  5. LOMANOR [Suspect]
     Active Substance: AMLODIPINE BESYLATE
     Dosage: 5 MG, UNK

REACTIONS (1)
  - Death [Fatal]

NARRATIVE: CASE EVENT DATE: 20180501
